FAERS Safety Report 6541881-5 (Version None)
Quarter: 2010Q1

REPORT INFORMATION
  Report Type: 
  Country: None (occurrence: None)
  Receive Date: 20100119
  Receipt Date: 20100106
  Transmission Date: 20100710
  Serious: Yes (Other)
  Sender: FDA-Public Use
  Company Number: US-PFIZER INC-2010002598

PATIENT
  Age: 80 Year
  Sex: Male

DRUGS (2)
  1. TIKOSYN [Suspect]
  2. DRONEDARONE [Suspect]

REACTIONS (4)
  - BLOOD PRESSURE DIASTOLIC DECREASED [None]
  - BLOOD PRESSURE SYSTOLIC INCREASED [None]
  - POLYURIA [None]
  - WEIGHT INCREASED [None]
